FAERS Safety Report 5839392-5 (Version None)
Quarter: 2008Q3

REPORT INFORMATION
  Report Type: 
  Country: None (occurrence: None)
  Receive Date: 20080806
  Receipt Date: 20080722
  Transmission Date: 20090109
  Serious: Yes (Other)
  Sender: FDA-Public Use
  Company Number: 2008JP003441

PATIENT
  Age: 80 Year
  Sex: Female

DRUGS (3)
  1. PROGRAF [Suspect]
     Indication: RHEUMATOID ARTHRITIS
     Dosage: 1 MG
  2. METHOTREXATE SODIUM [Concomitant]
  3. PREDNISOLONE TAB [Concomitant]

REACTIONS (2)
  - PNEUMOCYSTIS JIROVECI INFECTION [None]
  - PULMONARY HAEMORRHAGE [None]
